FAERS Safety Report 10273604 (Version 1)
Quarter: 2014Q2

REPORT INFORMATION
  Report Type: Spontaneous
  Country: US (occurrence: None)
  Receive Date: 20140630
  Receipt Date: 20140630
  Transmission Date: 20141212
  Serious: Yes (Other)
  Sender: FDA-Public Use
  Company Number: None

PATIENT
  Age: 58 Year
  Sex: Female
  Weight: 67.59 kg

DRUGS (9)
  1. BRINTELLIX [Suspect]
     Indication: DEPRESSION
     Dosage: 1 QD  ORAL
     Route: 048
     Dates: start: 20140320, end: 20140626
  2. PRAVASTATIN [Concomitant]
  3. METOPROLOL [Concomitant]
  4. LISINOPRIL [Concomitant]
  5. OMEPRAZOLE [Concomitant]
  6. LYRICA [Concomitant]
  7. DEPAKOTE ER [Concomitant]
  8. SEVELAMER [Concomitant]
  9. TRADJENTA [Concomitant]

REACTIONS (2)
  - Accidental overdose [None]
  - Feeling abnormal [None]
